FAERS Safety Report 9358443 (Version 2)
Quarter: 2013Q3

REPORT INFORMATION
  Report Type: Report from Study
  Country: US (occurrence: US)
  Receive Date: 20130620
  Receipt Date: 20130822
  Transmission Date: 20140515
  Serious: Yes (Hospitalization)
  Sender: FDA-Public Use
  Company Number: PHHY2012US101314

PATIENT
  Sex: Female
  Weight: 112.93 kg

DRUGS (7)
  1. GILENYA [Suspect]
     Indication: MULTIPLE SCLEROSIS
     Dosage: 0.5 MG, QD
     Route: 048
     Dates: start: 20110818
  2. XANAX [Concomitant]
     Dosage: UNK
     Dates: start: 201301
  3. GABAPENTIN [Concomitant]
     Dosage: UNK
     Dates: start: 201301
  4. OMEPRAZOLE [Concomitant]
     Dosage: UNK
     Dates: start: 201301
  5. PERCOCET [Concomitant]
     Dosage: UNK
     Dates: start: 201201
  6. TRAZODONE [Concomitant]
     Dosage: UNK
     Dates: start: 201201
  7. DYAZIDE [Concomitant]
     Dosage: UNK
     Dates: start: 201201

REACTIONS (2)
  - Muscle spasms [Recovered/Resolved]
  - Chest pain [Unknown]
